FAERS Safety Report 24558894 (Version 2)
Quarter: 2025Q1

REPORT INFORMATION
  Report Type: Spontaneous
  Country: US (occurrence: US)
  Receive Date: 20241029
  Receipt Date: 20250124
  Transmission Date: 20250408
  Serious: No
  Sender: BRISTOL-MYERS SQUIBB COMPANY
  Company Number: US-BRISTOL-MYERS SQUIBB COMPANY-2024-166887

PATIENT
  Age: 50 Year
  Sex: Female
  Weight: 48.53 kg

DRUGS (1)
  1. ORENCIA [Suspect]
     Active Substance: ABATACEPT
     Indication: Rheumatoid arthritis
     Dosage: DOSE : 125MG;     FREQ : WEEKLY

REACTIONS (5)
  - Product storage error [Unknown]
  - Weight decreased [Unknown]
  - Rheumatoid arthritis [Unknown]
  - Fatigue [Unknown]
  - Therapy interrupted [Unknown]
